FAERS Safety Report 11252913 (Version 6)
Quarter: 2016Q4

REPORT INFORMATION
  Report Type: Report from Study
  Country: IL (occurrence: IL)
  Receive Date: 20150708
  Receipt Date: 20161219
  Transmission Date: 20170206
  Serious: Yes (Hospitalization, Other)
  Sender: FDA-Public Use
  Company Number: PHHY2015IL079347

PATIENT
  Age: 35 Year
  Sex: Female

DRUGS (7)
  1. VITA-CAL [Concomitant]
     Indication: PRODUCT USED FOR UNKNOWN INDICATION
     Dosage: UNK
     Route: 065
  2. GILENYA [Suspect]
     Active Substance: FINGOLIMOD HYDROCHLORIDE
     Indication: MULTIPLE SCLEROSIS
     Dosage: 0.5 MG, Q5W (5/WEEK)
     Route: 048
     Dates: start: 20120422
  3. RISEDRONIC ACID [Concomitant]
     Active Substance: RISEDRONIC ACID
     Indication: PRODUCT USED FOR UNKNOWN INDICATION
     Dosage: UNK UNK, QW
     Route: 065
  4. MIRO (MIRTAZAPINE) [Concomitant]
     Indication: PRODUCT USED FOR UNKNOWN INDICATION
     Dosage: 45 MG, UNK
     Route: 065
  5. BACLOSAL [Concomitant]
     Indication: PRODUCT USED FOR UNKNOWN INDICATION
     Dosage: 4 DF (PILLS), QD
     Route: 065
  6. VITAMIN D [Concomitant]
     Active Substance: CHOLECALCIFEROL
     Indication: PRODUCT USED FOR UNKNOWN INDICATION
     Dosage: UNK
     Route: 065
  7. IRON [Concomitant]
     Active Substance: IRON
     Indication: PRODUCT USED FOR UNKNOWN INDICATION
     Dosage: UNK
     Route: 065

REACTIONS (18)
  - Dyspnoea [Unknown]
  - Nephrolithiasis [Unknown]
  - Abdominal pain lower [Unknown]
  - Abdominal pain [Not Recovered/Not Resolved]
  - Calculus urinary [Unknown]
  - Bacteriuria [Unknown]
  - Bacteroides test positive [Unknown]
  - Cystitis klebsiella [Unknown]
  - Aphasia [Recovering/Resolving]
  - Enterococcus test positive [Unknown]
  - Urinary tract infection [Not Recovered/Not Resolved]
  - Prescribed underdose [Unknown]
  - Pyrexia [Recovered/Resolved]
  - Bacteraemia [Unknown]
  - Confusional state [Unknown]
  - Pyrexia [Recovered/Resolved]
  - Speech disorder [Unknown]
  - Agnosia [Recovering/Resolving]

NARRATIVE: CASE EVENT DATE: 20120422
